APPROVED DRUG PRODUCT: TETRABENAZINE
Active Ingredient: TETRABENAZINE
Strength: 12.5MG
Dosage Form/Route: TABLET;ORAL
Application: A207682 | Product #001 | TE Code: AB
Applicant: MYLAN PHARMACEUTICALS INC
Approved: Jan 31, 2017 | RLD: No | RS: No | Type: RX